FAERS Safety Report 22174036 (Version 2)
Quarter: 2023Q2

REPORT INFORMATION
  Report Type: Spontaneous
  Country: US (occurrence: US)
  Receive Date: 20230405
  Receipt Date: 20230531
  Transmission Date: 20230722
  Serious: Yes (Other)
  Sender: FDA-Public Use
  Company Number: US-BRISTOL-MYERS SQUIBB COMPANY-2023-045203

PATIENT
  Age: 59 Year
  Sex: Female

DRUGS (2)
  1. POMALYST [Suspect]
     Active Substance: POMALIDOMIDE
     Indication: Plasma cell myeloma refractory
     Dosage: TAKE 1 CAPSULE WHOLE BY MOUTH EVERY EVENING FOR 21 CONSECUTIVE DAYS THEN STOP FOR 7 CONSECUTIVE DAYS
     Route: 048
     Dates: start: 20221217
  2. POMALYST [Suspect]
     Active Substance: POMALIDOMIDE
     Dosage: TAKE ONE WHOLE CAPSULE BY MOUTH EVERY EVENING FOR 21 CONSECUTIVE DAYS FOLLOWED BY 7 CONSECUTIVE DAYS
     Route: 048

REACTIONS (2)
  - Influenza like illness [Recovering/Resolving]
  - Weight increased [Not Recovered/Not Resolved]
